FAERS Safety Report 16838017 (Version 1)
Quarter: 2019Q3

REPORT INFORMATION
  Report Type: Spontaneous
  Country: US (occurrence: US)
  Receive Date: 20190923
  Receipt Date: 20190923
  Transmission Date: 20191005
  Serious: No
  Sender: FDA-Public Use
  Company Number: US-TEVA-2019-US-1111160

PATIENT
  Age: 44 Year
  Sex: Female

DRUGS (1)
  1. AJOVY [Suspect]
     Active Substance: FREMANEZUMAB-VFRM
     Indication: MIGRAINE
     Dosage: MONTHLY DOSING
     Dates: start: 201905

REACTIONS (14)
  - Hot flush [Unknown]
  - Muscle spasms [Unknown]
  - Fatigue [Unknown]
  - Musculoskeletal stiffness [Unknown]
  - Injection site pain [Unknown]
  - Influenza like illness [Unknown]
  - Abdominal pain upper [Unknown]
  - Product availability issue [Recovered/Resolved]
  - Myalgia [Unknown]
  - Product substitution issue [Unknown]
  - Injection site swelling [Unknown]
  - Nausea [Unknown]
  - Headache [Unknown]
  - Hyperhidrosis [Unknown]
